FAERS Safety Report 12265365 (Version 1)
Quarter: 2016Q2

REPORT INFORMATION
  Report Type: Report from Study
  Country: CA (occurrence: CA)
  Receive Date: 20160413
  Receipt Date: 20160413
  Transmission Date: 20160815
  Serious: Yes (Other)
  Sender: FDA-Public Use
  Company Number: PHHY2016CA047164

PATIENT
  Sex: Female

DRUGS (2)
  1. NEORAL [Suspect]
     Active Substance: CYCLOSPORINE
     Indication: PSORIASIS
     Dosage: UNK
     Route: 048
     Dates: start: 2002, end: 2002
  2. METHOTREXATE [Suspect]
     Active Substance: METHOTREXATE
     Indication: PRODUCT USED FOR UNKNOWN INDICATION
     Dosage: UNK
     Route: 065
     Dates: start: 1999, end: 2006

REACTIONS (7)
  - Influenza [Unknown]
  - Skin lesion [Unknown]
  - Tremor [Unknown]
  - Hepatic enzyme increased [Unknown]
  - Hepatic cirrhosis [Unknown]
  - Hepatic fibrosis [Unknown]
  - Drug intolerance [Unknown]

NARRATIVE: CASE EVENT DATE: 2002
